FAERS Safety Report 22110655 (Version 4)
Quarter: 2023Q2

REPORT INFORMATION
  Report Type: Spontaneous
  Country: US (occurrence: None)
  Receive Date: 20230317
  Receipt Date: 20230630
  Transmission Date: 20230721
  Serious: Yes (Hospitalization)
  Sender: FDA-Public Use
  Company Number: US-ROCHE-3311753

PATIENT
  Age: 18 Year
  Sex: Male
  Weight: 73 kg

DRUGS (3)
  1. HEMLIBRA [Suspect]
     Active Substance: EMICIZUMAB-KXWH
     Indication: Factor VIII deficiency
     Dosage: FORM STRENGTH : 105MG/0.7ML
     Route: 058
     Dates: start: 201207
  2. HEMLIBRA [Suspect]
     Active Substance: EMICIZUMAB-KXWH
     Indication: Factor VIII deficiency
     Dosage: FORM STRENGTH : 105MG/0.7ML
     Route: 058
     Dates: start: 202211
  3. KETOROLAC [Concomitant]
     Active Substance: KETOROLAC TROMETHAMINE
     Indication: Neck pain
     Route: 065

REACTIONS (4)
  - Haemorrhage [Unknown]
  - Haematoma [Unknown]
  - Muscle haemorrhage [Recovered/Resolved]
  - Procedural haemorrhage [Unknown]

NARRATIVE: CASE EVENT DATE: 20230306
